FAERS Safety Report 16168138 (Version 1)
Quarter: 2019Q2

REPORT INFORMATION
  Report Type: Spontaneous
  Country: US (occurrence: US)
  Receive Date: 20190404
  Receipt Date: 20190404
  Transmission Date: 20190711
  Serious: No
  Sender: FDA-Public Use
  Company Number: None

PATIENT
  Age: 28 Year
  Sex: Female
  Weight: 56.25 kg

DRUGS (1)
  1. DARK SPOT PATCH [Suspect]
     Active Substance: TRANEXAMIC ACID
     Indication: SCAR
     Dates: start: 20190328, end: 20190329

REACTIONS (1)
  - Dermatitis infected [None]

NARRATIVE: CASE EVENT DATE: 20190329
